FAERS Safety Report 15974981 (Version 4)
Quarter: 2019Q2

REPORT INFORMATION
  Report Type: Spontaneous
  Country: US (occurrence: US)
  Receive Date: 20190218
  Receipt Date: 20190503
  Transmission Date: 20190711
  Serious: Yes (Other)
  Sender: FDA-Public Use
  Company Number: US-GLAXOSMITHKLINE-US2019GSK028789

PATIENT
  Sex: Female

DRUGS (1)
  1. PREVACID [Suspect]
     Active Substance: LANSOPRAZOLE
     Indication: PRODUCT USED FOR UNKNOWN INDICATION
     Dosage: UNK
     Route: 065

REACTIONS (13)
  - Chronic kidney disease [Unknown]
  - Haematuria [Unknown]
  - Dialysis [Unknown]
  - Proteinuria [Unknown]
  - Pollakiuria [Unknown]
  - Blood creatinine increased [Unknown]
  - Renal injury [Unknown]
  - End stage renal disease [Unknown]
  - Nephritis [Unknown]
  - Kidney infection [Unknown]
  - Acute kidney injury [Unknown]
  - Renal impairment [Unknown]
  - Blood urea increased [Unknown]
